FAERS Safety Report 11824733 (Version 2)
Quarter: 2015Q4

REPORT INFORMATION
  Report Type: Spontaneous
  Country: AU (occurrence: AU)
  Receive Date: 20151210
  Receipt Date: 20151215
  Transmission Date: 20160305
  Serious: Yes (Hospitalization, Other)
  Sender: FDA-Public Use
  Company Number: AU-ABBVIE-14P-008-1196875-00

PATIENT
  Sex: Male

DRUGS (1)
  1. HUMIRA [Suspect]
     Active Substance: ADALIMUMAB
     Indication: MATERNAL EXPOSURE TIMING UNSPECIFIED
     Route: 064

REACTIONS (4)
  - Normal newborn [Unknown]
  - Foetal growth restriction [Unknown]
  - Foetal exposure during pregnancy [Unknown]
  - Weight decrease neonatal [Unknown]
